FAERS Safety Report 6420216-2 (Version None)
Quarter: 2009Q4

REPORT INFORMATION
  Report Type: 
  Country: None (occurrence: None)
  Receive Date: 20091029
  Receipt Date: 20091016
  Transmission Date: 20100525
  Serious: Yes (Other)
  Sender: FDA-Public Use
  Company Number: PHHY2009DE12504

PATIENT
  Sex: Female

DRUGS (2)
  1. ZOMETA [Suspect]
     Dosage: UNK
     Route: 042
     Dates: start: 20050713
  2. ARIMIDEX [Concomitant]
     Indication: BREAST CANCER
     Dosage: UNK
     Dates: start: 20050101

REACTIONS (1)
  - OSTEONECROSIS [None]
